FAERS Safety Report 10739654 (Version 1)
Quarter: 2015Q1

REPORT INFORMATION
  Report Type: Report from Study
  Country: TH (occurrence: TH)
  Receive Date: 20150127
  Receipt Date: 20150127
  Transmission Date: 20150721
  Serious: Yes (Hospitalization, Other)
  Sender: FDA-Public Use
  Company Number: TH-ROCHE-1059352

PATIENT
  Age: 54 Year
  Sex: Male
  Weight: 54 kg

DRUGS (13)
  1. VITAMIN B-COMPLEX FORTE [Concomitant]
     Route: 065
     Dates: start: 20120403, end: 20120620
  2. CYCLOPHOSPHAMIDE. [Suspect]
     Active Substance: CYCLOPHOSPHAMIDE
     Indication: DIFFUSE LARGE B-CELL LYMPHOMA
     Dosage: DOSE OF LAST CYCLOPHOSPHAMIDE:1200 MG
     Route: 042
     Dates: start: 20120405
  3. PREDNISONE. [Suspect]
     Active Substance: PREDNISONE
     Indication: DIFFUSE LARGE B-CELL LYMPHOMA
     Dosage: DOSE OF LAST PREDNISONE:100 MG, DATE OF MOST RECENT DOSE: 9 APR 12
     Route: 042
     Dates: start: 20120405
  4. DEXAMETHASONE. [Concomitant]
     Active Substance: DEXAMETHASONE
     Route: 065
     Dates: start: 20120403, end: 20120918
  5. ONSIA [Concomitant]
     Route: 065
     Dates: start: 20120403, end: 20120918
  6. SENOKOT [Concomitant]
     Active Substance: SENNOSIDES
     Route: 065
     Dates: start: 20120403, end: 20120922
  7. OBINUTUZUMAB [Suspect]
     Active Substance: OBINUTUZUMAB
     Indication: DIFFUSE LARGE B-CELL LYMPHOMA
     Dosage: DOSE CONCENTRATION OF LAST GA101 TAKEN:4 MG/ML
     Route: 042
     Dates: start: 20120405
  8. CYPROHEPTADINE. [Concomitant]
     Active Substance: CYPROHEPTADINE
     Route: 065
     Dates: start: 20120403, end: 20121008
  9. DOXORUBICIN [Suspect]
     Active Substance: DOXORUBICIN
     Indication: DIFFUSE LARGE B-CELL LYMPHOMA
     Dosage: DOSE OF LAST DOXORUBICIN TAKEN:80 MG
     Route: 042
     Dates: start: 20120405
  10. PARACETAMOL [Concomitant]
     Active Substance: ACETAMINOPHEN
     Route: 065
     Dates: start: 20120403, end: 20120918
  11. ALLOPURINOL. [Concomitant]
     Active Substance: ALLOPURINOL
     Route: 065
     Dates: start: 20120403, end: 20120412
  12. VINCRISTINE [Suspect]
     Active Substance: VINCRISTINE
     Indication: DIFFUSE LARGE B-CELL LYMPHOMA
     Dosage: DOSE OF LAST VINCRISTINE TAKEN:2 MG
     Route: 042
     Dates: start: 20120405
  13. PIRITON [Concomitant]
     Active Substance: CHLORPHENIRAMINE MALEATE
     Route: 065
     Dates: start: 20120403, end: 20120918

REACTIONS (1)
  - Febrile neutropenia [Recovered/Resolved]

NARRATIVE: CASE EVENT DATE: 20120412
